FAERS Safety Report 24092648 (Version 3)
Quarter: 2024Q3

REPORT INFORMATION
  Report Type: Spontaneous
  Country: US (occurrence: US)
  Receive Date: 20240715
  Receipt Date: 20240916
  Transmission Date: 20241016
  Serious: No
  Sender: INCYTE
  Company Number: US-INCYTE CORPORATION-2024IN006641

PATIENT

DRUGS (3)
  1. OPZELURA [Suspect]
     Active Substance: RUXOLITINIB PHOSPHATE
     Indication: Vitiligo
     Dosage: 60 GRAM, QD
     Route: 061
  2. OPZELURA [Suspect]
     Active Substance: RUXOLITINIB PHOSPHATE
     Dosage: 60 GRAM, QD
     Route: 061
  3. OPZELURA [Suspect]
     Active Substance: RUXOLITINIB PHOSPHATE
     Dosage: 60 GRAM, QD
     Route: 061

REACTIONS (5)
  - Vitiligo [Unknown]
  - Off label use [Unknown]
  - Alopecia [Unknown]
  - Drug effect less than expected [Unknown]
  - Drug ineffective [Unknown]
